FAERS Safety Report 22251695 (Version 3)
Quarter: 2023Q2

REPORT INFORMATION
  Report Type: Report from Study
  Country: US (occurrence: US)
  Receive Date: 20230425
  Receipt Date: 20230518
  Transmission Date: 20230721
  Serious: Yes (Other)
  Sender: FDA-Public Use
  Company Number: US-JAZZ PHARMACEUTICALS-2023-US-007575

PATIENT
  Sex: Male

DRUGS (7)
  1. XYREM [Suspect]
     Active Substance: SODIUM OXYBATE
     Indication: Narcolepsy
     Dosage: UNK
  2. XYREM [Suspect]
     Active Substance: SODIUM OXYBATE
     Indication: Cataplexy
  3. XYREM [Suspect]
     Active Substance: SODIUM OXYBATE
     Indication: Somnolence
  4. ALCOHOL [Suspect]
     Active Substance: ALCOHOL
     Indication: Product used for unknown indication
  5. VITAMIN D3 [Concomitant]
     Active Substance: CHOLECALCIFEROL
     Dosage: 0000
     Dates: start: 20160607
  6. MODAFINIL [Concomitant]
     Active Substance: MODAFINIL
     Dosage: 0000
     Dates: start: 20191009
  7. VITAMINS [Concomitant]
     Active Substance: VITAMINS
     Dosage: 0000
     Dates: start: 20170208

REACTIONS (5)
  - Craniocerebral injury [Unknown]
  - Suicidal ideation [Unknown]
  - Alcohol use [Unknown]
  - Concussion [Unknown]
  - Pre-existing condition improved [Unknown]
